FAERS Safety Report 5171681-2 (Version None)
Quarter: 2006Q4

REPORT INFORMATION
  Report Type: 
  Country: None (occurrence: None)
  Receive Date: 20061205
  Receipt Date: 20061120
  Transmission Date: 20070319
  Serious: Yes (Other)
  Sender: FDA-Public Use
  Company Number: 2006144743

PATIENT
  Age: 40 Year
  Sex: Female
  Weight: 58.9676 kg

DRUGS (7)
  1. SOLU-MEDROL [Suspect]
     Indication: SWOLLEN TONGUE
     Dosage: (80 MG)
     Dates: start: 20061114
  2. SOLU-MEDROL [Suspect]
     Indication: URTICARIA
     Dosage: (80 MG)
     Dates: start: 20061114
  3. BENADRYL [Suspect]
     Indication: SWOLLEN TONGUE
     Dates: start: 20061114
  4. BENADRYL [Suspect]
     Indication: URTICARIA
     Dates: start: 20061114
  5. TYLENOL [Concomitant]
  6. MOTRIN [Concomitant]
  7. ASPIRIN [Concomitant]

REACTIONS (3)
  - OEDEMA MOUTH [None]
  - THROAT TIGHTNESS [None]
  - VISION BLURRED [None]
